FAERS Safety Report 7636345-1 (Version None)
Quarter: 2011Q3

REPORT INFORMATION
  Report Type: 
  Country: None (occurrence: None)
  Receive Date: 20110726
  Receipt Date: 20110719
  Transmission Date: 20111222
  Serious: Yes (Hospitalization)
  Sender: FDA-Public Use
  Company Number: US-GLAXOSMITHKLINE-A0937348A

PATIENT
  Sex: Female

DRUGS (6)
  1. WATER PILL [Concomitant]
  2. PANTOPRAZOLE SODIUM [Concomitant]
  3. XANAX [Concomitant]
  4. WARFARIN [Concomitant]
  5. ADVAIR DISKUS 100/50 [Suspect]
     Indication: CHRONIC OBSTRUCTIVE PULMONARY DISEASE
     Dosage: 1PUFF TWICE PER DAY
     Route: 055
     Dates: end: 20110717
  6. VITAMIN TAB [Concomitant]

REACTIONS (2)
  - PNEUMONIA [None]
  - THROMBOSIS [None]
